FAERS Safety Report 9516761 (Version 2)
Quarter: 2013Q4

REPORT INFORMATION
  Report Type: Spontaneous
  Country: US (occurrence: US)
  Receive Date: 20130911
  Receipt Date: 20131014
  Transmission Date: 20140711
  Serious: Yes (Other)
  Sender: FDA-Public Use
  Company Number: US-TEVA-431415USA

PATIENT
  Age: 40 Year
  Sex: Female
  Weight: 73.55 kg

DRUGS (1)
  1. PARAGARD 380A [Suspect]
     Indication: CONTRACEPTION
     Route: 015
     Dates: start: 20130802, end: 20130903

REACTIONS (1)
  - Embedded device [Recovered/Resolved]
